FAERS Safety Report 19606285 (Version 1)
Quarter: 2021Q3

REPORT INFORMATION
  Report Type: Spontaneous
  Country: US (occurrence: US)
  Receive Date: 20210725
  Receipt Date: 20210725
  Transmission Date: 20211014
  Serious: No
  Sender: FDA-Public Use
  Company Number: US-ORGANON-O2107USA000977

PATIENT
  Age: 11 Year
  Sex: Male

DRUGS (3)
  1. NIMODIPINE. [Concomitant]
     Active Substance: NIMODIPINE
     Indication: THUNDERCLAP HEADACHE
     Dosage: 60 MILLIGRAM, Q6H (EVERY SIX HOURS)
     Route: 048
  2. NIMODIPINE. [Concomitant]
     Active Substance: NIMODIPINE
     Dosage: 60 MILLIGRAM, TID (THREE TIMES DAILY)
     Route: 048
  3. MAXALT [Suspect]
     Active Substance: RIZATRIPTAN BENZOATE
     Indication: THUNDERCLAP HEADACHE
     Dosage: 10 MILLIGRAM
     Route: 048

REACTIONS (1)
  - Product use in unapproved indication [Unknown]
